FAERS Safety Report 4510756-5 (Version None)
Quarter: 2004Q4

REPORT INFORMATION
  Report Type: 
  Country: None (occurrence: None)
  Receive Date: 20041122
  Receipt Date: 20041112
  Transmission Date: 20050328
  Serious: Yes (Hospitalization)
  Sender: FDA-Public Use
  Company Number: DE-2004-030971

PATIENT
  Age: 33 Year
  Sex: Female
  Weight: 52 kg

DRUGS (1)
  1. MIRENA [Suspect]
     Indication: CONTRACEPTION
     Dosage: 20 UG/DAY, CONT, INTRA-UTERINE
     Route: 015
     Dates: start: 20040109, end: 20040614

REACTIONS (6)
  - ACUTE ABDOMEN [None]
  - APPENDICITIS [None]
  - IUD MIGRATION [None]
  - PERITONITIS [None]
  - UTERINE HAEMORRHAGE [None]
  - UTERINE PERFORATION [None]
